FAERS Safety Report 5515374-8 (Version None)
Quarter: 2007Q4

REPORT INFORMATION
  Report Type: 
  Country: None (occurrence: None)
  Receive Date: 20071109
  Receipt Date: 20071026
  Transmission Date: 20080405
  Serious: No
  Sender: FDA-Public Use
  Company Number: TPA2007A02196

PATIENT
  Age: 44 Year
  Sex: Female
  Weight: 62.1428 kg

DRUGS (10)
  1. ROZEREM [Suspect]
     Indication: INSOMNIA
     Dosage: 8 MG, QHS, PER ORAL; 16 MG, 2 TABLETS QHS, PER ORAL
     Route: 048
     Dates: start: 20071011, end: 20071011
  2. ROZEREM [Suspect]
     Indication: MIDDLE INSOMNIA
     Dosage: 8 MG, QHS, PER ORAL; 16 MG, 2 TABLETS QHS, PER ORAL
     Route: 048
     Dates: start: 20071011, end: 20071011
  3. ROZEREM [Suspect]
     Indication: INSOMNIA
     Dosage: 8 MG, QHS, PER ORAL; 16 MG, 2 TABLETS QHS, PER ORAL
     Route: 048
     Dates: start: 20071012, end: 20071015
  4. ROZEREM [Suspect]
     Indication: MIDDLE INSOMNIA
     Dosage: 8 MG, QHS, PER ORAL; 16 MG, 2 TABLETS QHS, PER ORAL
     Route: 048
     Dates: start: 20071012, end: 20071015
  5. HYDROXYCHLOROQUINE (HYDROXYCHLOROQUINE SULFATE) [Concomitant]
  6. HYDROCHLOROTHIAZIDE [Concomitant]
  7. CALCIUM/MAGNESIUM (MAGNESIUM, CALCIUM) [Concomitant]
  8. AMBIEN [Concomitant]
  9. ESTER-C (CALCIUM ASCORBATE) [Concomitant]
  10. MULTIVITAMIN (EROGOCALCIFEROL, ASCORBIC ACID, FOLIC ACID, THIAMINE HYD [Concomitant]

REACTIONS (4)
  - AMENORRHOEA [None]
  - INSOMNIA [None]
  - MIDDLE INSOMNIA [None]
  - PAIN [None]
